FAERS Safety Report 21215512 (Version 1)
Quarter: 2022Q3

REPORT INFORMATION
  Report Type: Spontaneous
  Country: US (occurrence: US)
  Receive Date: 20220816
  Receipt Date: 20220816
  Transmission Date: 20221026
  Serious: No
  Sender: FDA-Public Use
  Company Number: US-BRISTOL-MYERS SQUIBB COMPANY-2022-090453

PATIENT
  Sex: Male

DRUGS (3)
  1. THALOMID [Suspect]
     Active Substance: THALIDOMIDE
     Indication: Brain neoplasm
     Dosage: FREQUENCY TEXT: UNKNOWN?UNKNOWN
     Route: 048
  2. METHOTREXATE [Suspect]
     Active Substance: METHOTREXATE
     Indication: Product used for unknown indication
     Route: 065
  3. BOTULINUM TOXIN TYPE A [Concomitant]
     Active Substance: BOTULINUM TOXIN TYPE A
     Indication: Product used for unknown indication
     Route: 065

REACTIONS (2)
  - Epistaxis [Unknown]
  - Paraesthesia [Unknown]

NARRATIVE: CASE EVENT DATE: 20010209
